FAERS Safety Report 4517420-7 (Version None)
Quarter: 2004Q4

REPORT INFORMATION
  Report Type: 
  Country: None (occurrence: None)
  Receive Date: 20041022
  Receipt Date: 20040916
  Transmission Date: 20050328
  Serious: Yes (Hospitalization)
  Sender: FDA-Public Use
  Company Number: 800130

PATIENT
  Age: 71 Year
  Sex: Male
  Weight: 90.2658 kg

DRUGS (19)
  1. EXTRANEAL [Suspect]
     Indication: PERITONEAL DIALYSIS
     Dosage: 2 L; QD, INTRTAPERITONEAL
     Route: 032
     Dates: start: 20040915, end: 20040915
  2. COUMADIN [Concomitant]
  3. NEPHROCAPS [Concomitant]
  4. EPOGEN [Concomitant]
  5. LIPITOR [Concomitant]
  6. PHOSLO [Concomitant]
  7. LANTUS [Concomitant]
  8. FOLIC ACID [Concomitant]
  9. GLUCOTROL [Concomitant]
  10. HECTOROL [Concomitant]
  11. FERROUS SULFATE TAB [Concomitant]
  12. POTASSIUM CHLORIDE [Concomitant]
  13. ACIDOPHILUS ^ZYMA^ [Concomitant]
  14. ENTERIC ASPIRIN [Concomitant]
  15. SOTALOL HCL [Concomitant]
  16. CLARINEX [Concomitant]
  17. COLCHICINE [Concomitant]
  18. TAVIST [Concomitant]
  19. COLACE [Concomitant]

REACTIONS (3)
  - CITROBACTER INFECTION [None]
  - ESCHERICHIA INFECTION [None]
  - PERITONITIS BACTERIAL [None]
